FAERS Safety Report 8897126 (Version 1)
Quarter: 2012Q4

REPORT INFORMATION
  Report Type: 
  Country: JP (occurrence: JP)
  Receive Date: 20121108
  Receipt Date: 20121108
  Transmission Date: 20130627
  Serious: Yes (Hospitalization)
  Sender: FDA-Public Use
  Company Number: JP-SANOFI-AVENTIS-2012SA079986

PATIENT
  Age: 82 Year
  Sex: Female

DRUGS (4)
  1. RYTHMODAN [Suspect]
     Indication: DRUG USE FOR UNKNOWN INDICATION
     Route: 065
  2. LASIX [Suspect]
     Indication: DRUG USE FOR UNKNOWN INDICATION
     Route: 065
  3. MEXITIL [Suspect]
     Indication: DRUG USE FOR UNKNOWN INDICATION
     Route: 065
  4. SHAKUYAKUKANZOUTOU [Concomitant]

REACTIONS (5)
  - Metabolic alkalosis [Unknown]
  - Syncope [Unknown]
  - Hypokalaemia [Unknown]
  - Electrocardiogram QT prolonged [Recovered/Resolved]
  - Ventricular tachycardia [Unknown]
